FAERS Safety Report 5203785-X (Version None)
Quarter: 2007Q1

REPORT INFORMATION
  Report Type: 
  Country: None (occurrence: None)
  Receive Date: 20070109
  Receipt Date: 20070109
  Transmission Date: 20070707
  Serious: Yes (Hospitalization)
  Sender: FDA-Public Use
  Company Number: None

PATIENT
  Age: 43 Year
  Sex: Female

DRUGS (3)
  1. RAPAMYCIN [Suspect]
     Dosage: 3MG QD
  2. PREDNISONE TAB [Suspect]
     Dosage: 10MG QD
  3. IMURAN [Suspect]
     Dosage: 75MG QD

REACTIONS (1)
  - COLITIS [None]
